FAERS Safety Report 4655234-8 (Version None)
Quarter: 2005Q2

REPORT INFORMATION
  Report Type: 
  Country: None (occurrence: None)
  Receive Date: 20050506
  Receipt Date: 20050425
  Transmission Date: 20051028
  Serious: Yes (Life-Threatening, Hospitalization)
  Sender: FDA-Public Use
  Company Number: ES-GLAXOSMITHKLINE-B0379529A

PATIENT
  Age: 65 Year
  Sex: Male

DRUGS (6)
  1. TRIZIVIR [Suspect]
     Indication: HIV INFECTION
     Route: 048
     Dates: start: 20050101, end: 20050219
  2. ENALAPRIL MALEATE [Concomitant]
     Indication: HYPERTENSION
     Dates: end: 20050219
  3. HYDROCHLOROTHIAZIDE [Concomitant]
     Indication: HYPERTENSION
     Dates: end: 20050219
  4. GEMFIBROZIL [Concomitant]
     Indication: HYPERLIPIDAEMIA
  5. COMBIVIR [Concomitant]
     Indication: HIV INFECTION
  6. SUSTIVA [Concomitant]
     Indication: HIV INFECTION

REACTIONS (12)
  - COUGH [None]
  - DIARRHOEA [None]
  - DRUG HYPERSENSITIVITY [None]
  - HEPATIC ENZYME INCREASED [None]
  - HEPATIC STEATOSIS [None]
  - HEPATOMEGALY [None]
  - HYPERSENSITIVITY [None]
  - LIVER DISORDER [None]
  - LUNG INFILTRATION [None]
  - PRURITUS [None]
  - PYREXIA [None]
  - RASH ERYTHEMATOUS [None]
